FAERS Safety Report 24719203 (Version 2)
Quarter: 2025Q1

REPORT INFORMATION
  Report Type: Report from Study
  Country: US (occurrence: US)
  Receive Date: 20241210
  Receipt Date: 20250123
  Transmission Date: 20250408
  Serious: Yes (Other)
  Sender: BEIGENE
  Company Number: US-BEIGENE-BGN-2024-019832

PATIENT
  Age: 76 Year

DRUGS (1)
  1. BRUKINSA [Suspect]
     Active Substance: ZANUBRUTINIB
     Indication: Peripheral T-cell lymphoma unspecified
     Dosage: 320 MILLIGRAM, DAILY

REACTIONS (8)
  - Blood pressure increased [Unknown]
  - Presyncope [Unknown]
  - Atrial tachycardia [Unknown]
  - Arteriosclerosis [Unknown]
  - Coronary artery disease [Unknown]
  - Heart rate increased [Unknown]
  - Dizziness [Unknown]
  - Off label use [Unknown]
